FAERS Safety Report 6318902-8 (Version None)
Quarter: 2009Q3

REPORT INFORMATION
  Report Type: 
  Country: None (occurrence: None)
  Receive Date: 20090821
  Receipt Date: 20080806
  Transmission Date: 20100115
  Serious: No
  Sender: FDA-Public Use
  Company Number: US-ABBOTT-08P-163-0469071-00

PATIENT
  Sex: Male
  Weight: 88.984 kg

DRUGS (2)
  1. NIASPAN [Suspect]
     Indication: BLOOD CHOLESTEROL INCREASED
     Dosage: AT BEDTIME
     Route: 048
     Dates: start: 20080725, end: 20080729
  2. LIQUID VITAMIN [Concomitant]
     Indication: VITAMIN SUPPLEMENTATION
     Route: 048

REACTIONS (4)
  - JOINT SWELLING [None]
  - MOUTH ULCERATION [None]
  - OEDEMA PERIPHERAL [None]
  - PAIN [None]
